FAERS Safety Report 13103273 (Version 3)
Quarter: 2017Q1

REPORT INFORMATION
  Report Type: Report from Study
  Country: US (occurrence: US)
  Receive Date: 20170110
  Receipt Date: 20170127
  Transmission Date: 20170428
  Serious: Yes (Other)
  Sender: FDA-Public Use
  Company Number: US-JAZZ-2016-US-024347

PATIENT
  Age: 71 Year
  Sex: Female

DRUGS (31)
  1. TRIAMCINOLONE [Concomitant]
     Active Substance: TRIAMCINOLONE
  2. CIPRO [Concomitant]
     Active Substance: CIPROFLOXACIN HYDROCHLORIDE
  3. BUPROPION HCL [Concomitant]
     Active Substance: BUPROPION HYDROCHLORIDE
  4. COLESTIPOL HCL [Concomitant]
     Active Substance: COLESTIPOL HYDROCHLORIDE
  5. TETRACYCLINE [Concomitant]
     Active Substance: TETRACYCLINE
  6. OXYCODONE HYDROCHLORIDE. [Concomitant]
     Active Substance: OXYCODONE HYDROCHLORIDE
  7. LYRICA [Concomitant]
     Active Substance: PREGABALIN
  8. BENADRYL [Concomitant]
     Active Substance: DIPHENHYDRAMINE HYDROCHLORIDE
  9. DICYCLOMINE                        /00068601/ [Concomitant]
     Active Substance: DICYCLOMINE HYDROCHLORIDE
  10. SILVADENE [Concomitant]
     Active Substance: SILVER SULFADIAZINE
  11. VITAMIN D3 [Concomitant]
     Active Substance: CHOLECALCIFEROL
  12. XYREM [Suspect]
     Active Substance: SODIUM OXYBATE
     Dosage: 2.25 G, QD
     Route: 048
     Dates: start: 201607
  13. AMMONIUM LACTATE. [Concomitant]
     Active Substance: AMMONIUM LACTATE
  14. BIOTIN [Concomitant]
     Active Substance: BIOTIN
  15. NUVIGIL [Concomitant]
     Active Substance: ARMODAFINIL
  16. WELLBUTRIN [Concomitant]
     Active Substance: BUPROPION HYDROCHLORIDE
  17. OMEPRAZOLE. [Concomitant]
     Active Substance: OMEPRAZOLE
  18. TRIMETHOPRIM. [Concomitant]
     Active Substance: TRIMETHOPRIM
  19. CITALOPRAM [Concomitant]
     Active Substance: CITALOPRAM HYDROBROMIDE
  20. VOLTAREN [Concomitant]
     Active Substance: DICLOFENAC SODIUM
  21. XYREM [Suspect]
     Active Substance: SODIUM OXYBATE
     Indication: CATAPLEXY
     Dosage: DOSE ADJUSTMENT
     Route: 048
     Dates: start: 2004, end: 2016
  22. TOVIAZ [Concomitant]
     Active Substance: FESOTERODINE FUMARATE
  23. ADDERALL [Concomitant]
     Active Substance: AMPHETAMINE ASPARTATE\AMPHETAMINE SULFATE\DEXTROAMPHETAMINE SACCHARATE\DEXTROAMPHETAMINE SULFATE
  24. GEMFIBROZIL. [Concomitant]
     Active Substance: GEMFIBROZIL
  25. METFORMIN HCL [Concomitant]
     Active Substance: METFORMIN HYDROCHLORIDE
  26. LIDOCAINE. [Concomitant]
     Active Substance: LIDOCAINE
  27. LOSARTAN POTASSIUM. [Concomitant]
     Active Substance: LOSARTAN POTASSIUM
  28. XYREM [Suspect]
     Active Substance: SODIUM OXYBATE
     Indication: NARCOLEPSY
     Dosage: 2.25 G, BID
     Route: 048
     Dates: start: 200406, end: 2004
  29. FLAVOXATE HCL [Concomitant]
  30. LIDOCAINE HCL [Concomitant]
     Active Substance: LIDOCAINE HYDROCHLORIDE
  31. VITAMIN B12 [Concomitant]
     Active Substance: CYANOCOBALAMIN

REACTIONS (12)
  - Limb injury [Unknown]
  - Pain [Unknown]
  - Eyelid disorder [Not Recovered/Not Resolved]
  - Foot fracture [Unknown]
  - Balance disorder [Unknown]
  - Tremor [Unknown]
  - Drug ineffective [Unknown]
  - Insomnia [Unknown]
  - Joint swelling [Unknown]
  - Loss of consciousness [Unknown]
  - Visual impairment [Not Recovered/Not Resolved]
  - Unevaluable event [Unknown]

NARRATIVE: CASE EVENT DATE: 201610
